FAERS Safety Report 7649139-8 (Version None)
Quarter: 2011Q3

REPORT INFORMATION
  Report Type: 
  Country: None (occurrence: None)
  Receive Date: 20110802
  Receipt Date: 20110725
  Transmission Date: 20111222
  Serious: Yes (Other)
  Sender: FDA-Public Use
  Company Number: US-JNJFOC-20110712082

PATIENT
  Sex: Male
  Weight: 61.24 kg

DRUGS (5)
  1. FENTANYL-100 [Suspect]
     Indication: NEOPLASM MALIGNANT
     Dosage: 100UG/HR AND 50 UG/HR
     Route: 062
     Dates: start: 20110101
  2. PEPCID [Concomitant]
     Indication: GASTRIC DISORDER
     Route: 048
  3. FENTANYL CITRATE [Suspect]
     Indication: NEOPLASM MALIGNANT
     Dosage: 100UG/HR AND 50UG/HR
     Route: 062
     Dates: end: 20110101
  4. NORCO [Concomitant]
     Indication: BREAKTHROUGH PAIN
     Dosage: 10-325MG
     Route: 048
  5. FENTANYL [Suspect]
     Indication: NEOPLASM MALIGNANT
     Dosage: 100UG/HR AND 50UG/HR PATCH
     Route: 062

REACTIONS (2)
  - DIPLEGIA [None]
  - APPLICATION SITE IRRITATION [None]
